FAERS Safety Report 8018159-6 (Version None)
Quarter: 2012Q1

REPORT INFORMATION
  Report Type: 
  Country: None (occurrence: None)
  Receive Date: 20120103
  Receipt Date: 20111219
  Transmission Date: 20120608
  Serious: Yes (Hospitalization)
  Sender: FDA-Public Use
  Company Number: FR-UCBSA-047887

PATIENT
  Age: 52 Year
  Sex: Male

DRUGS (13)
  1. ACTEMRA [Suspect]
     Dosage: STRENGHT: 20MG/ML
     Dates: start: 20080801, end: 20090601
  2. PREDNISONE TAB [Concomitant]
  3. CIMZIA [Suspect]
     Route: 058
     Dates: start: 20110101, end: 20110901
  4. METHOTREXATE SODIUM [Suspect]
     Route: 058
     Dates: start: 20080101
  5. METHOTREXATE SODIUM [Suspect]
     Route: 058
     Dates: start: 20100801
  6. CIMZIA [Suspect]
     Dosage: 400MG AT DAY-0, DAY-15 AND DAY-30
     Route: 058
     Dates: start: 20110701, end: 20110101
  7. METHOTREXATE SODIUM [Suspect]
     Route: 058
     Dates: start: 20050101
  8. REMICADE [Suspect]
     Dosage: 500MG, THEN 600MG AND THEN 700MG
     Dates: start: 20090701, end: 20110701
  9. ANTI-DEPRESSIVE DRUG [Concomitant]
  10. BISPHOSPHONATES [Concomitant]
  11. METHOTREXATE SODIUM [Suspect]
     Route: 058
     Dates: start: 20040101
  12. ORENCIA [Suspect]
     Dosage: STRENGHT 250MG
     Dates: start: 20080101, end: 20080801
  13. NON-STEROIDAL ANTI-INFLAMMATORY DRUG [Concomitant]

REACTIONS (5)
  - PSOAS ABSCESS [None]
  - DIABETES MELLITUS [None]
  - EXTRADURAL ABSCESS [None]
  - INTERVERTEBRAL DISCITIS [None]
  - SALMONELLA SEPSIS [None]
